FAERS Safety Report 6756332-5 (Version None)
Quarter: 2010Q2

REPORT INFORMATION
  Report Type: 
  Country: None (occurrence: None)
  Receive Date: 20100604
  Receipt Date: 20100528
  Transmission Date: 20101027
  Serious: Yes (Other)
  Sender: FDA-Public Use
  Company Number: A0861918A

PATIENT
  Sex: Female

DRUGS (4)
  1. ALLI [Suspect]
     Indication: WEIGHT LOSS DIET
     Route: 048
     Dates: start: 20080101
  2. HRT [Concomitant]
     Indication: HORMONE REPLACEMENT THERAPY
  3. NEXIUM [Concomitant]
     Route: 048
  4. LIPITOR [Concomitant]

REACTIONS (3)
  - DRUG INEFFECTIVE [None]
  - HAEMORRHOIDS [None]
  - LIVER FUNCTION TEST ABNORMAL [None]
